FAERS Safety Report 7926953-2 (Version None)
Quarter: 2011Q4

REPORT INFORMATION
  Report Type: 
  Country: None (occurrence: None)
  Receive Date: 20111118
  Receipt Date: 20111110
  Transmission Date: 20120403
  Serious: Yes (Other)
  Sender: FDA-Public Use
  Company Number: US-JNJFOC-20111104744

PATIENT
  Age: 71 Year
  Sex: Female

DRUGS (5)
  1. ARICEPT [Concomitant]
     Route: 065
  2. RISPERDAL [Suspect]
     Dosage: RECEIVED .5 MG IN AM AND AN ADDITIONAL .5 MG AT HOUR OF SLEEP
     Route: 065
  3. RISPERDAL [Suspect]
     Route: 065
     Dates: start: 20111107
  4. RISPERDAL [Suspect]
     Indication: AGGRESSION
     Dosage: RECEIVED .5 MG IN AM AND AN ADDITIONAL .5 MG AT HOUR OF SLEEP
     Route: 065
  5. RISPERDAL [Suspect]
     Indication: AGITATION
     Route: 065
     Dates: start: 20111107

REACTIONS (1)
  - CEREBRAL INFARCTION [None]
